FAERS Safety Report 19576400 (Version 1)
Quarter: 2021Q3

REPORT INFORMATION
  Report Type: Spontaneous
  Country: US (occurrence: US)
  Receive Date: 20210717
  Receipt Date: 20210717
  Transmission Date: 20211014
  Serious: Yes (Death)
  Sender: FDA-Public Use
  Company Number: None

PATIENT
  Age: 72 Year
  Sex: Female
  Weight: 61.23 kg

DRUGS (17)
  1. BRAFTOVI [Suspect]
     Active Substance: ENCORAFENIB
     Indication: MALIGNANT MELANOMA
     Route: 048
  2. BENZONATATE. [Concomitant]
     Active Substance: BENZONATATE
  3. MVI [Concomitant]
     Active Substance: VITAMINS
  4. FAMOTIDINE. [Concomitant]
     Active Substance: FAMOTIDINE
  5. ZOLOFT [Concomitant]
     Active Substance: SERTRALINE HYDROCHLORIDE
  6. ASPIRIN. [Concomitant]
     Active Substance: ASPIRIN
  7. CENTRUM [Concomitant]
     Active Substance: VITAMINS
  8. ACYCLOVIR. [Concomitant]
     Active Substance: ACYCLOVIR
  9. CALCIUM D [Concomitant]
     Active Substance: CALCIUM\VITAMIN D
  10. MEKTOVI [Suspect]
     Active Substance: BINIMETINIB
     Indication: MALIGNANT MELANOMA
     Route: 048
  11. CEFADROXIL. [Concomitant]
     Active Substance: CEFADROXIL
  12. LEVOTHYROXINE. [Concomitant]
     Active Substance: LEVOTHYROXINE
  13. MAG OX [Concomitant]
     Active Substance: MAGNESIUM OXIDE
  14. PROCHLORPERAZINE. [Concomitant]
     Active Substance: PROCHLORPERAZINE
  15. COLACE [Concomitant]
     Active Substance: DOCUSATE SODIUM
  16. CREASTOR [Concomitant]
     Active Substance: ROSUVASTATIN CALCIUM
  17. FERROUS SULFATE. [Concomitant]
     Active Substance: FERROUS SULFATE

REACTIONS (1)
  - Death [None]
